FAERS Safety Report 7846419-8 (Version None)
Quarter: 2011Q4

REPORT INFORMATION
  Report Type: 
  Country: None (occurrence: None)
  Receive Date: 20111025
  Receipt Date: 20111025
  Transmission Date: 20120403
  Serious: Yes (Life-Threatening, Hospitalization)
  Sender: FDA-Public Use
  Company Number: None

PATIENT
  Age: 62 Year
  Sex: Female
  Weight: 77.11 kg

DRUGS (1)
  1. DILAUDID [Suspect]
     Indication: PROCEDURAL PAIN
     Dosage: UNKNOWN
     Route: 041
     Dates: start: 20100702, end: 20100702

REACTIONS (1)
  - RESPIRATORY ARREST [None]
